FAERS Safety Report 10067238 (Version 3)
Quarter: 2015Q1

REPORT INFORMATION
  Report Type: Spontaneous
  Country: US (occurrence: None)
  Receive Date: 20140407
  Receipt Date: 20150319
  Transmission Date: 20150720
  Serious: Yes (Life-Threatening, Hospitalization, Other)
  Sender: FDA-Public Use
  Company Number: 1713747-2014-99943

PATIENT
  Age: 52 Year
  Sex: Male
  Weight: 94 kg

DRUGS (19)
  1. LIBERTY CYCLER [Concomitant]
     Active Substance: DEVICE
  2. RENA-VITE [Concomitant]
     Active Substance: VITAMINS
  3. LACTULOSE. [Concomitant]
     Active Substance: LACTULOSE
  4. REGULAR INSULIN [Concomitant]
     Active Substance: INSULIN NOS
  5. TYLENOL [Concomitant]
     Active Substance: ACETAMINOPHEN
  6. VENOFER [Concomitant]
     Active Substance: IRON SUCROSE
  7. DELFLEX [Suspect]
     Active Substance: CALCIUM CHLORIDE\DEXTROSE MONOHYDRATE\MAGNESIUM CHLORIDE\SODIUM CHLORIDE\SODIUM LACTATE
     Indication: CHRONIC KIDNEY DISEASE
     Dosage: DAILY, PERITONEAL
  8. RPCALTROL [Concomitant]
  9. LIBERTY CYCLER CASSETTE [Concomitant]
     Active Substance: DEVICE
  10. SLING SCALE WITH HUMALOG [Concomitant]
  11. CALCIUM CARBONATE. [Concomitant]
     Active Substance: CALCIUM CARBONATE
  12. CLONAZEPAM. [Concomitant]
     Active Substance: CLONAZEPAM
  13. COGENTIN [Concomitant]
     Active Substance: BENZTROPINE MESYLATE
  14. SENSIPAR [Concomitant]
     Active Substance: CINACALCET HYDROCHLORIDE
  15. NORVASC [Concomitant]
     Active Substance: AMLODIPINE BESYLATE
  16. PROTONIX [Concomitant]
     Active Substance: PANTOPRAZOLE SODIUM
  17. CULTURELIE [Concomitant]
  18. LANTUS [Concomitant]
     Active Substance: INSULIN GLARGINE
  19. COAZR [Concomitant]

REACTIONS (1)
  - Peritonitis [None]

NARRATIVE: CASE EVENT DATE: 20131111
